FAERS Safety Report 11374763 (Version 2)
Quarter: 2015Q3

REPORT INFORMATION
  Report Type: Spontaneous
  Country: BR (occurrence: BR)
  Receive Date: 20150813
  Receipt Date: 20150814
  Transmission Date: 20151125
  Serious: Yes (Hospitalization)
  Sender: FDA-Public Use
  Company Number: BR-ACCORD-032835

PATIENT
  Age: 59 Year
  Sex: Male
  Weight: 54.1 kg

DRUGS (7)
  1. CISPLATIN ACCORD [Suspect]
     Active Substance: CISPLATIN
     Indication: OESOPHAGEAL CANCER METASTATIC
     Dosage: ESOPHAGEAL CANCER MALIGNANT EXTENDING TO STOMACH (CHEMOTHERAPY - 30MG/M2 (D1,D8,D15,D22,D29,D36))
     Route: 042
     Dates: start: 20150707, end: 20150707
  2. DIPHENHYDRAMINE. [Concomitant]
     Active Substance: DIPHENHYDRAMINE
     Indication: PREMEDICATION
     Route: 042
  3. OMEPRAZOLE. [Concomitant]
     Active Substance: OMEPRAZOLE
  4. PACLITAXEL/PACLITAXEL LIPOSOME [Suspect]
     Active Substance: PACLITAXEL
     Indication: PRODUCT USED FOR UNKNOWN INDICATION
     Dosage: 60MG/M2 (D1,D8,D15,D22,D29,D36)
     Route: 042
  5. DEXAMETHASONE. [Concomitant]
     Active Substance: DEXAMETHASONE
     Indication: PREMEDICATION
     Route: 042
  6. ONDANSETRON [Concomitant]
     Active Substance: ONDANSETRON
     Indication: PREMEDICATION
     Dosage: PRE CHEMOTHERAPY (D1,D8,D15,D22,D29,D36)
     Route: 042
  7. RANITIDINE [Concomitant]
     Active Substance: RANITIDINE\RANITIDINE HYDROCHLORIDE
     Dosage: PRE CHEMOTHERAPY (D1,D8,D15,D22,D29,D36)
     Route: 042

REACTIONS (5)
  - Gastrooesophageal sphincter insufficiency [Recovered/Resolved]
  - Tumour haemorrhage [Recovered/Resolved]
  - Depressed level of consciousness [Recovered/Resolved]
  - Abdominal pain upper [Recovered/Resolved]
  - Off label use [Unknown]

NARRATIVE: CASE EVENT DATE: 20150707
